FAERS Safety Report 18364317 (Version 1)
Quarter: 2020Q4

REPORT INFORMATION
  Report Type: Spontaneous
  Country: US (occurrence: US)
  Receive Date: 20201009
  Receipt Date: 20201009
  Transmission Date: 20210114
  Serious: No
  Sender: FDA-Public Use
  Company Number: US-GW PHARMA-202010USGW03415

PATIENT

DRUGS (1)
  1. EPIDIOLEX [Suspect]
     Active Substance: CANNABIDIOL
     Indication: LENNOX-GASTAUT SYNDROME
     Dosage: 3000 MILLIGRAM, QD (700 MG EVERY MORNING, 500 MG IN THE AFTERNOON AND THEN 1800 MG EVERY EVENING)
     Route: 048
     Dates: start: 20190402

REACTIONS (1)
  - Diarrhoea [Unknown]
